FAERS Safety Report 11704651 (Version 1)
Quarter: 2015Q4

REPORT INFORMATION
  Report Type: Spontaneous
  Country: US (occurrence: US)
  Receive Date: 20151106
  Receipt Date: 20151106
  Transmission Date: 20160304
  Serious: Yes (Death)
  Sender: FDA-Public Use
  Company Number: US-BEH-2015055253

PATIENT
  Age: 72 Year
  Sex: Male

DRUGS (1)
  1. IVIG [Suspect]
     Active Substance: HUMAN IMMUNOGLOBULIN G
     Indication: ENCEPHALITIS AUTOIMMUNE
     Route: 042

REACTIONS (5)
  - Encephalitis autoimmune [Fatal]
  - Seizure [Unknown]
  - Dementia [Unknown]
  - Drug ineffective for unapproved indication [Unknown]
  - Neurological decompensation [Fatal]
